FAERS Safety Report 4487122-4 (Version None)
Quarter: 2004Q4

REPORT INFORMATION
  Report Type: 
  Country: None (occurrence: None)
  Receive Date: 20041027
  Receipt Date: 20041011
  Transmission Date: 20050328
  Serious: Yes (Other)
  Sender: FDA-Public Use
  Company Number: PHEH2004US10917

PATIENT
  Age: 60 Year
  Sex: Male

DRUGS (9)
  1. ZOMETA [Suspect]
     Indication: BONE NEOPLASM MALIGNANT
     Dosage: MONTHLY
     Dates: start: 20010101
  2. WARFARIN [Concomitant]
     Dosage: 3 MG, QD
  3. HYDROCORTISONE [Concomitant]
     Indication: PROSTATE CANCER
     Dosage: 30 MG, QD
  4. PROSCAR [Concomitant]
     Dosage: 2.5 MG, QD
  5. NIZORAL [Concomitant]
     Dosage: 600 MG, QD
  6. FLOMAX [Concomitant]
  7. DIETHYLSTILBESTROL [Concomitant]
     Dosage: 3 MG, QD
  8. M.V.I. [Concomitant]
     Dosage: QD
  9. LIDOCAINE [Concomitant]
     Indication: ANAESTHESIA
     Dates: start: 20040505, end: 20040505

REACTIONS (12)
  - ENDODONTIC PROCEDURE [None]
  - IMPAIRED HEALING [None]
  - INFECTION [None]
  - JAW DISORDER [None]
  - ORAL SOFT TISSUE DISORDER [None]
  - OSTEOMYELITIS [None]
  - OSTEONECROSIS [None]
  - PAIN IN JAW [None]
  - SEQUESTRECTOMY [None]
  - SWELLING [None]
  - TOOTH EXTRACTION [None]
  - WOUND DEBRIDEMENT [None]
